FAERS Safety Report 5834762-3 (Version None)
Quarter: 2008Q3

REPORT INFORMATION
  Report Type: 
  Country: None (occurrence: None)
  Receive Date: 20080801
  Receipt Date: 20080723
  Transmission Date: 20090109
  Serious: Yes (Hospitalization)
  Sender: FDA-Public Use
  Company Number: GXKR2008IT06937

PATIENT
  Sex: Male

DRUGS (1)
  1. CLARITHROMYCIN [Suspect]

REACTIONS (1)
  - HAEMATEMESIS [None]
